FAERS Safety Report 19667527 (Version 1)
Quarter: 2021Q3

REPORT INFORMATION
  Report Type: Spontaneous
  Country: US (occurrence: US)
  Receive Date: 20210806
  Receipt Date: 20210806
  Transmission Date: 20211014
  Serious: No
  Sender: FDA-Public Use
  Company Number: US-AURINIA PHARMACEUTICALS INC.-AUR-000132

PATIENT
  Age: 25 Year
  Sex: Female
  Weight: 52.6 kg

DRUGS (4)
  1. HCQ [Concomitant]
     Active Substance: HYDROXYCHLOROQUINE SULFATE
     Indication: PRODUCT USED FOR UNKNOWN INDICATION
     Dosage: 400 MILLIGRAM, QD
  2. LUPKYNIS [Suspect]
     Active Substance: VOCLOSPORIN
     Indication: LUPUS NEPHRITIS
     Dosage: 23.7 MILLIGRAM, BID
     Route: 048
     Dates: start: 20210321, end: 20210521
  3. MYFORTIC [Concomitant]
     Active Substance: MYCOPHENOLATE SODIUM
     Indication: PRODUCT USED FOR UNKNOWN INDICATION
     Dosage: 720 MILLIGRAM, BID
  4. LUPKYNIS [Suspect]
     Active Substance: VOCLOSPORIN
     Indication: SYSTEMIC LUPUS ERYTHEMATOSUS
     Dosage: 15.8 MILLIGRAM, BID
     Route: 048
     Dates: start: 20210521, end: 20210623

REACTIONS (1)
  - Hepatic enzyme increased [Not Recovered/Not Resolved]

NARRATIVE: CASE EVENT DATE: 20210521
